FAERS Safety Report 6109097-4 (Version None)
Quarter: 2009Q1

REPORT INFORMATION
  Report Type: 
  Country: None (occurrence: None)
  Receive Date: 20090310
  Receipt Date: 20090303
  Transmission Date: 20090719
  Serious: Yes (Other)
  Sender: FDA-Public Use
  Company Number: US-BAYER-200913124NA

PATIENT
  Sex: Female

DRUGS (4)
  1. AVELOX [Suspect]
     Indication: DRUG USE FOR UNKNOWN INDICATION
  2. ADVAIR HFA [Concomitant]
  3. ALBUTEROL [Concomitant]
  4. SINGULAIR [Concomitant]

REACTIONS (5)
  - ANAPHYLACTOID REACTION [None]
  - CHEST DISCOMFORT [None]
  - DYSPNOEA [None]
  - SYNCOPE [None]
  - URTICARIA [None]
